FAERS Safety Report 13261675 (Version 1)
Quarter: 2017Q1

REPORT INFORMATION
  Report Type: Spontaneous
  Country: JP (occurrence: JP)
  Receive Date: 20170222
  Receipt Date: 20170222
  Transmission Date: 20170428
  Serious: Yes (Hospitalization)
  Sender: FDA-Public Use
  Company Number: JP-DSJP-DSJ-2017-105500

PATIENT

DRUGS (2)
  1. LIXIANA TABLETS [Suspect]
     Active Substance: EDOXABAN TOSILATE MONOHYDRATE
     Indication: ATRIAL FIBRILLATION
     Dosage: UNK
     Route: 065
  2. VASOLAN                            /00014302/ [Concomitant]
     Active Substance: VERAPAMIL HYDROCHLORIDE
     Dosage: UNK
     Route: 065

REACTIONS (1)
  - Gastric cancer [Unknown]
